FAERS Safety Report 4696742-3 (Version None)
Quarter: 2005Q2

REPORT INFORMATION
  Report Type: 
  Country: None (occurrence: None)
  Receive Date: 20050622
  Receipt Date: 20050614
  Transmission Date: 20051028
  Serious: Yes (Other)
  Sender: FDA-Public Use
  Company Number: US-KINGPHARMUSA00001-K200500813

PATIENT
  Sex: Female

DRUGS (1)
  1. ALTACE [Suspect]
     Dates: start: 20030401

REACTIONS (11)
  - ANOREXIA [None]
  - ASTHENIA [None]
  - BRONCHITIS [None]
  - CONJUNCTIVITIS [None]
  - DYSPNOEA [None]
  - HEADACHE [None]
  - MALAISE [None]
  - PHARYNGOLARYNGEAL PAIN [None]
  - PRODUCTIVE COUGH [None]
  - PRURITUS [None]
  - RESPIRATION ABNORMAL [None]
